FAERS Safety Report 6336411-7 (Version None)
Quarter: 2009Q3

REPORT INFORMATION
  Report Type: 
  Country: None (occurrence: None)
  Receive Date: 20090828
  Receipt Date: 20090824
  Transmission Date: 20100115
  Serious: Yes (Other)
  Sender: FDA-Public Use
  Company Number: GB-1170668

PATIENT
  Age: 73 Year
  Sex: Female

DRUGS (1)
  1. TROPICAMIDE [Suspect]
     Indication: MYDRIASIS
     Dosage: 1 DF QD OPHTHALMIC
     Route: 047
     Dates: start: 20090630, end: 20090630

REACTIONS (1)
  - ANGLE CLOSURE GLAUCOMA [None]
